FAERS Safety Report 11790781 (Version 2)
Quarter: 2016Q1

REPORT INFORMATION
  Report Type: Report from Study
  Country: US (occurrence: US)
  Receive Date: 20151201
  Receipt Date: 20160203
  Transmission Date: 20160525
  Serious: Yes (Hospitalization)
  Sender: FDA-Public Use
  Company Number: US-CELGENE-USA-2015116036

PATIENT
  Age: 74 Year
  Sex: Female
  Weight: 49.5 kg

DRUGS (4)
  1. ISTODAX [Suspect]
     Active Substance: ROMIDEPSIN
     Indication: ANGIOIMMUNOBLASTIC T-CELL LYMPHOMA
     Route: 041
     Dates: start: 20150911
  2. ISTODAX [Suspect]
     Active Substance: ROMIDEPSIN
     Route: 065
     Dates: start: 20151029
  3. CARFILZOMIB [Suspect]
     Active Substance: CARFILZOMIB
     Indication: ANGIOIMMUNOBLASTIC T-CELL LYMPHOMA
     Dosage: 45 MILLIGRAM/SQ. METER
     Route: 065
     Dates: start: 20150911
  4. REVLIMID [Suspect]
     Active Substance: LENALIDOMIDE
     Indication: ANGIOIMMUNOBLASTIC T-CELL LYMPHOMA
     Dosage: 15 MILLIGRAM
     Route: 048
     Dates: start: 20150911

REACTIONS (3)
  - Face oedema [Not Recovered/Not Resolved]
  - Oedema peripheral [Not Recovered/Not Resolved]
  - Localised oedema [Not Recovered/Not Resolved]

NARRATIVE: CASE EVENT DATE: 20151117
